FAERS Safety Report 15159930 (Version 2)
Quarter: 2018Q3

REPORT INFORMATION
  Report Type: Spontaneous
  Country: KR (occurrence: KR)
  Receive Date: 20180718
  Receipt Date: 20180718
  Transmission Date: 20181010
  Serious: Yes (Other)
  Sender: FDA-Public Use
  Company Number: PHHY2018KR043181

PATIENT
  Age: 52 Year
  Sex: Female

DRUGS (7)
  1. PREDNISOLONE. [Suspect]
     Active Substance: PREDNISOLONE
     Indication: NECROTISING RETINITIS
     Dosage: 20 MG, UNK
     Route: 048
  2. ASPIRIN. [Suspect]
     Active Substance: ASPIRIN
     Indication: NECROTISING RETINITIS
     Dosage: 100 MG, UNK
     Route: 065
  3. MOXIFLOXACIN. [Suspect]
     Active Substance: MOXIFLOXACIN
     Indication: PRODUCT USED FOR UNKNOWN INDICATION
     Dosage: 0.5 %, UNK (IN BOTH EYES FOR 4 TIMES)
     Route: 065
  4. FLUOROMETHOLONE. [Suspect]
     Active Substance: FLUOROMETHOLONE
     Indication: NECROTISING RETINITIS
     Dosage: 0.1 %, UNK (EYE DROP)
     Route: 065
  5. ATROPINE SULFATE. [Suspect]
     Active Substance: ATROPINE SULFATE
     Indication: NECROTISING RETINITIS
     Route: 065
  6. VALACYCLOVIR [Suspect]
     Active Substance: VALACYCLOVIR HYDROCHLORIDE
     Indication: NECROTISING RETINITIS
     Dosage: 3000 MG, UNK
     Route: 065
  7. FLUOROMETHOLONE. [Suspect]
     Active Substance: FLUOROMETHOLONE
     Dosage: 0.02 %, UNK (IN BOTH EYES FOR 4 TIMES)
     Route: 065

REACTIONS (2)
  - Product use in unapproved indication [Unknown]
  - Retinal detachment [Recovered/Resolved]
